FAERS Safety Report 6157424-4 (Version None)
Quarter: 2009Q2

REPORT INFORMATION
  Report Type: 
  Country: None (occurrence: None)
  Receive Date: 20090416
  Receipt Date: 20090407
  Transmission Date: 20091009
  Serious: Yes (Hospitalization, Disabling)
  Sender: FDA-Public Use
  Company Number: US-PFIZER INC-2009156813

PATIENT
  Sex: Male
  Weight: 77.098 kg

DRUGS (15)
  1. FLAGYL [Suspect]
     Indication: DIARRHOEA
     Dosage: 500 MG, 3X/DAY
     Route: 048
     Dates: start: 20080529, end: 20080912
  2. VIBRAMYCIN [Suspect]
     Dosage: UNK
     Route: 048
     Dates: start: 20080101
  3. VANCOMYCIN [Suspect]
     Dosage: UNK
     Route: 048
     Dates: start: 20080912
  4. VANCOMYCIN HCL [Suspect]
     Dosage: 250 MG, UNK
  5. ALPRAZOLAM [Concomitant]
     Dosage: UNK
  6. LOPID [Concomitant]
  7. DIURIL [Concomitant]
     Dosage: UNK
     Route: 048
  8. MULTI-VITAMINS [Concomitant]
     Dosage: UNK
  9. GEMFIBROZIL [Concomitant]
  10. DILTIAZEM [Concomitant]
     Dosage: UNK
  11. CHLOROTHIAZIDE [Concomitant]
     Dosage: UNK
  12. DOXAZOSIN MESILATE [Concomitant]
     Dosage: UNK
  13. FLOMAX [Concomitant]
     Dosage: UNK
  14. CYCLOBENZAPRINE [Concomitant]
     Dosage: UNK
  15. HYOSCYAMINE [Concomitant]
     Dosage: UNK

REACTIONS (5)
  - HYPERAESTHESIA [None]
  - HYPOAESTHESIA [None]
  - NEUROPATHY PERIPHERAL [None]
  - PARAESTHESIA [None]
  - WEIGHT DECREASED [None]
